FAERS Safety Report 4398165-3 (Version None)
Quarter: 2004Q3

REPORT INFORMATION
  Report Type: 
  Country: None (occurrence: None)
  Receive Date: 20040715
  Receipt Date: 20040708
  Transmission Date: 20050211
  Serious: Yes (Other)
  Sender: FDA-Public Use
  Company Number: PHFR2004GB02764

PATIENT
  Sex: Female

DRUGS (1)
  1. EXELON [Suspect]
     Route: 048

REACTIONS (3)
  - CHOLELITHIASIS [None]
  - NAUSEA [None]
  - VOMITING [None]
